FAERS Safety Report 16004947 (Version 2)
Quarter: 2020Q3

REPORT INFORMATION
  Report Type: Spontaneous
  Country: US (occurrence: US)
  Receive Date: 20190226
  Receipt Date: 20200730
  Transmission Date: 20201102
  Serious: Yes (Death, Other)
  Sender: FDA-Public Use
  Company Number: PHEH2019US008268

PATIENT
  Sex: Female

DRUGS (1)
  1. TASIGNA [Suspect]
     Active Substance: NILOTINIB
     Indication: CHRONIC MYELOID LEUKAEMIA
     Dosage: 02 DF, BID
     Route: 048
     Dates: start: 20140814, end: 201906

REACTIONS (15)
  - Neck pain [Unknown]
  - Dyspnoea [Unknown]
  - Anxiety [Unknown]
  - Arthralgia [Unknown]
  - Myocardial infarction [Unknown]
  - Fatigue [Unknown]
  - Coronary artery disease [Unknown]
  - Injury [Unknown]
  - Anaemia [Recovered/Resolved]
  - Parkinson^s disease [Unknown]
  - Chest pain [Unknown]
  - Dizziness [Unknown]
  - Death [Fatal]
  - Pain [Unknown]
  - Emotional distress [Unknown]
